FAERS Safety Report 6188687-7 (Version None)
Quarter: 2009Q2

REPORT INFORMATION
  Report Type: 
  Country: None (occurrence: None)
  Receive Date: 20090513
  Receipt Date: 20090505
  Transmission Date: 20091009
  Serious: Yes (Hospitalization, Other)
  Sender: FDA-Public Use
  Company Number: AU-JNJFOC-20061105438

PATIENT
  Sex: Male
  Weight: 69 kg

DRUGS (15)
  1. TMC114 [Suspect]
     Route: 048
  2. TMC114 [Suspect]
     Indication: HIV INFECTION
     Dosage: TEMPORARY STOP
     Route: 048
  3. RITONAVIR [Suspect]
     Route: 065
  4. RITONAVIR [Suspect]
     Indication: HIV INFECTION
     Route: 065
  5. SERETIDE INHALER [Concomitant]
     Indication: ASTHMA
     Route: 055
  6. VENTOLIN DS [Concomitant]
     Indication: ASTHMA
     Route: 055
  7. SPIRIVA [Concomitant]
     Route: 055
  8. SPIRIVA [Concomitant]
     Route: 055
  9. DIFLUCAN [Concomitant]
     Route: 048
  10. LAMIVUDINE [Concomitant]
     Route: 048
  11. LAMIVUDINE [Concomitant]
     Route: 048
  12. TENOFOVIR [Concomitant]
     Route: 048
  13. TENOFOVIR [Concomitant]
     Indication: HIV INFECTION
     Route: 048
  14. COMBIVIR [Concomitant]
     Route: 048
  15. COMBIVIR [Concomitant]
     Indication: HIV INFECTION
     Route: 048

REACTIONS (5)
  - ASTHMA [None]
  - CONDITION AGGRAVATED [None]
  - CUSHING'S SYNDROME [None]
  - DRUG INTERACTION [None]
  - NO THERAPEUTIC RESPONSE [None]
